FAERS Safety Report 6699289-8 (Version None)
Quarter: 2010Q2

REPORT INFORMATION
  Report Type: 
  Country: None (occurrence: None)
  Receive Date: 20100427
  Receipt Date: 20100414
  Transmission Date: 20101027
  Serious: Yes (Hospitalization, Disabling)
  Sender: FDA-Public Use
  Company Number: US-ELI_LILLY_AND_COMPANY-US_0502112341

PATIENT
  Sex: Female
  Weight: 92.971 kg

DRUGS (6)
  1. ZYPREXA [Suspect]
     Indication: SCHIZOPHRENIA
     Dosage: UNK, DAILY (1/D)
     Dates: start: 20010301
  2. HALDOL [Concomitant]
  3. WELLBUTRIN [Concomitant]
     Dosage: 25 MG, UNK
  4. TOPAMAX [Concomitant]
  5. ATENOLOL [Concomitant]
     Dosage: 25 MG, UNK
     Dates: end: 20061001
  6. PREDNISONE TAB [Concomitant]
     Dosage: 10 MG, 2/D

REACTIONS (9)
  - BLOOD CHOLESTEROL INCREASED [None]
  - BLOOD TRIGLYCERIDES INCREASED [None]
  - DIABETES MELLITUS [None]
  - HYPERTENSION [None]
  - MACULAR DEGENERATION [None]
  - NEUROPATHY PERIPHERAL [None]
  - OBESITY [None]
  - WEIGHT INCREASED [None]
  - WHITE BLOOD CELL COUNT INCREASED [None]
